FAERS Safety Report 9729586 (Version 1)
Quarter: 2013Q4

REPORT INFORMATION
  Report Type: Spontaneous
  Country: US (occurrence: US)
  Receive Date: 20131204
  Receipt Date: 20131204
  Transmission Date: 20140711
  Serious: No
  Sender: FDA-Public Use
  Company Number: US-ENDO PHARMACEUTICALS INC.-ZOLP20120056

PATIENT
  Sex: Male

DRUGS (2)
  1. ZOLPIDEM TARTRATE TABLETS 10MG [Suspect]
     Indication: SLEEP DISORDER THERAPY
     Route: 048
     Dates: start: 200910
  2. COUMADIN [Concomitant]
     Indication: VASCULAR RUPTURE

REACTIONS (1)
  - Muscular weakness [Not Recovered/Not Resolved]
